FAERS Safety Report 6080986-2 (Version None)
Quarter: 2009Q1

REPORT INFORMATION
  Report Type: 
  Country: None (occurrence: None)
  Receive Date: 20090217
  Receipt Date: 20090208
  Transmission Date: 20090719
  Serious: Yes (Hospitalization)
  Sender: FDA-Public Use
  Company Number: US-B.I. PHARMACEUTICALS,INC./RIDGEFIELD-2009-BP-01650BP

PATIENT
  Sex: Female

DRUGS (9)
  1. DULCOLAX [Suspect]
     Indication: CONSTIPATION
     Dosage: 10MG
     Route: 048
     Dates: start: 20090208
  2. PREVACID [Suspect]
  3. ACTOPLUS MET [Concomitant]
  4. ELAVIL [Concomitant]
  5. FLEXERIL [Concomitant]
  6. ALLEGRA [Concomitant]
  7. IBUPROFEN [Concomitant]
  8. CYMBALTA [Concomitant]
  9. SOMA [Concomitant]

REACTIONS (6)
  - ABDOMINAL PAIN UPPER [None]
  - HEAD INJURY [None]
  - NAUSEA [None]
  - SKIN LESION [None]
  - SYNCOPE [None]
  - TONGUE BITING [None]
